FAERS Safety Report 8447794-6 (Version None)
Quarter: 2012Q2

REPORT INFORMATION
  Report Type: 
  Country: None (occurrence: None)
  Receive Date: 20120619
  Receipt Date: 20120606
  Transmission Date: 20120825
  Serious: Yes (Other)
  Sender: FDA-Public Use
  Company Number: AR-COVIDIEN/TYCO HEALTHCARE/MALLINCKRODT-T201202511

PATIENT
  Age: 67 Year
  Sex: Male

DRUGS (10)
  1. FENTANYL [Concomitant]
     Indication: PREMEDICATION
     Dosage: 100 UG
  2. PROPOFOL [Concomitant]
     Indication: GENERAL ANAESTHESIA
     Dosage: 150 MG
  3. CARVEDILOL [Concomitant]
     Dosage: UNK
  4. ASPIRIN [Concomitant]
     Dosage: UNK
  5. BUPIVACAINE HCL [Concomitant]
     Indication: ANAESTHESIA
     Dosage: 75 MG
     Route: 037
  6. ATORVASTATIN CALCIUM [Concomitant]
     Dosage: UNK
  7. MORPHINE [Suspect]
     Indication: ANAESTHESIA
     Dosage: 400 ?G, UNK
     Route: 037
  8. REMIFENTANIL [Concomitant]
     Indication: GENERAL ANAESTHESIA
     Dosage: 0.5 UG/KG/MIN
  9. MIDAZOLAM [Concomitant]
     Indication: PREMEDICATION
     Dosage: 3 MG
  10. PROPOFOL [Concomitant]
     Dosage: 100 UG/KG/MIN

REACTIONS (5)
  - VISION BLURRED [None]
  - NYSTAGMUS [None]
  - PRURITUS [None]
  - VERTIGO [None]
  - HYPERHIDROSIS [None]
